FAERS Safety Report 17327587 (Version 4)
Quarter: 2020Q2

REPORT INFORMATION
  Report Type: Report from Study
  Country: US (occurrence: US)
  Receive Date: 20200127
  Receipt Date: 20200609
  Transmission Date: 20200713
  Serious: Yes (Hospitalization)
  Sender: FDA-Public Use
  Company Number: NVSC2020US018439

PATIENT
  Age: 7 Year
  Sex: Male
  Weight: 17.9 kg

DRUGS (20)
  1. CEFTRIAXONE. [Concomitant]
     Active Substance: CEFTRIAXONE
     Indication: PRODUCT USED FOR UNKNOWN INDICATION
     Dosage: UNK
     Route: 042
     Dates: start: 20191210
  2. CLINDAMYCIN. [Concomitant]
     Active Substance: CLINDAMYCIN
     Indication: PRODUCT USED FOR UNKNOWN INDICATION
     Dosage: UNK, BID
     Route: 061
     Dates: start: 20191210
  3. SODIUM CHLORIDE. [Concomitant]
     Active Substance: SODIUM CHLORIDE
     Indication: PRODUCT USED FOR UNKNOWN INDICATION
     Dosage: 10 ML PRN
     Route: 042
  4. GSK1120212 [Suspect]
     Active Substance: TRAMETINIB
     Dosage: 1.8 MG, UNKNOWN
     Route: 048
     Dates: start: 20200108, end: 20200110
  5. ALBUTEROL. [Concomitant]
     Active Substance: ALBUTEROL
     Indication: PRODUCT USED FOR UNKNOWN INDICATION
     Dosage: 2 UNITS PRN
     Route: 055
  6. SEPTRA [Concomitant]
     Active Substance: SULFAMETHOXAZOLE\TRIMETHOPRIM
     Indication: PROPHYLAXIS
     Dosage: 1 TAB 400-80 BID
     Route: 048
     Dates: start: 20190827
  7. CLARITIN [Concomitant]
     Active Substance: LORATADINE
     Indication: HYPERSENSITIVITY
     Dosage: 5 MG  10 MG TAB QD
     Route: 048
     Dates: start: 20190504
  8. BENADRYL [Concomitant]
     Active Substance: DIPHENHYDRAMINE HYDROCHLORIDE
     Indication: DRUG THERAPY
     Dosage: 12.5 MG, PRN
     Route: 042
     Dates: start: 20191209
  9. OXYCODONE [Concomitant]
     Active Substance: OXYCODONE
     Indication: PAIN
     Dosage: 2 MG, PRN
     Route: 048
     Dates: start: 20200102
  10. QVAR [Concomitant]
     Active Substance: BECLOMETHASONE DIPROPIONATE
     Indication: ASTHMA
     Dosage: 2 PUFFS 40 MG BID
     Route: 065
     Dates: start: 20190118
  11. POLYMYXIN B -TRIMETHOPRIM OPHTHA [Concomitant]
     Indication: EYE PAIN
     Dosage: 1 QH 1 MG/ML Q3HRS
     Route: 047
     Dates: start: 20191214
  12. BACTROBAN [Concomitant]
     Active Substance: MUPIROCIN\MUPIROCIN CALCIUM
     Indication: PRODUCT USED FOR UNKNOWN INDICATION
     Dosage: 1 APPLIE BID
     Route: 061
     Dates: start: 20200101
  13. GSK1120212 [Suspect]
     Active Substance: TRAMETINIB
     Indication: JUVENILE CHRONIC MYELOMONOCYTIC LEUKAEMIA
     Dosage: 0.025 MG/KG, QD
     Route: 048
     Dates: start: 20191210
  14. ZOFRON [Concomitant]
     Active Substance: ONDANSETRON
     Indication: NAUSEA
     Dosage: 2 MG/ML, PRN
     Route: 042
     Dates: start: 20200102
  15. PROPOFOL. [Concomitant]
     Active Substance: PROPOFOL
     Indication: SEDATION
     Dosage: 15 ML XL
     Route: 042
     Dates: start: 20200101
  16. EMLA [Concomitant]
     Active Substance: LIDOCAINE\PRILOCAINE
     Indication: PROPHYLAXIS
     Dosage: 1 APPLIE PRN
     Route: 061
  17. HYDROCORTISONE. [Concomitant]
     Active Substance: HYDROCORTISONE
     Indication: PRODUCT USED FOR UNKNOWN INDICATION
     Dosage: UNK, BID
     Route: 061
     Dates: start: 20191210
  18. AMOXICILLIN. [Concomitant]
     Active Substance: AMOXICILLIN
     Indication: STREPTOCOCCAL INFECTION
     Dosage: 12 M/S 400MG/50 ML QD
     Route: 048
     Dates: start: 20191210, end: 20191231
  19. BIOTENE NOS [Concomitant]
     Active Substance: CETYLPYRIDINIUM CHLORIDE OR SODIUM FLUORIDE OR SODIUM MONOFLUOROPHOSPHATE OR GLUCOSE OXIDASE\LACTOFERRIN\LACTOPEROXIDASE BOVINE\LYSOZYME
     Indication: PROPHYLAXIS
     Dosage: 15 ML BISA DAY SWOSH SPIT
     Route: 065
     Dates: start: 20191223
  20. HEPARIN FLUSH [Concomitant]
     Active Substance: HEPARIN SODIUM
     Indication: PRODUCT USED FOR UNKNOWN INDICATION
     Dosage: 3-5 ML 100MG/ML PRN
     Route: 042

REACTIONS (1)
  - Upper respiratory tract infection [Recovering/Resolving]

NARRATIVE: CASE EVENT DATE: 20200113
